FAERS Safety Report 7749500-7 (Version None)
Quarter: 2011Q3

REPORT INFORMATION
  Report Type: 
  Country: None (occurrence: None)
  Receive Date: 20110914
  Receipt Date: 20100520
  Transmission Date: 20111222
  Serious: No
  Sender: FDA-Public Use
  Company Number: US-BAYER-201023899NA

PATIENT
  Sex: Female

DRUGS (1)
  1. MIRENA [Suspect]
     Indication: PRODUCT USED FOR UNKNOWN INDICATION
     Dosage: 20 ?G/D, UNK
     Route: 015
     Dates: start: 20100201

REACTIONS (5)
  - DYSPAREUNIA [None]
  - DISCOMFORT [None]
  - VAGINAL HAEMORRHAGE [None]
  - NO ADVERSE EVENT [None]
  - GENITAL HAEMORRHAGE [None]
